FAERS Safety Report 4745210-9 (Version None)
Quarter: 2005Q3

REPORT INFORMATION
  Report Type: 
  Country: None (occurrence: None)
  Receive Date: 20050812
  Receipt Date: 20050729
  Transmission Date: 20060218
  Serious: Yes (Other)
  Sender: FDA-Public Use
  Company Number: FR-2005-012273

PATIENT
  Age: 37 Year
  Sex: Female
  Weight: 59.013 kg

DRUGS (3)
  1. BETASERON [Suspect]
     Indication: MULTIPLE SCLEROSIS
     Dosage: 250 UG EVERY 2 D SUBCUTANEOUS
     Route: 058
     Dates: start: 20020401, end: 20050624
  2. GELUPRANE [Concomitant]
  3. PREDNISOLONE [Concomitant]

REACTIONS (1)
  - MALIGNANT MELANOMA [None]
